FAERS Safety Report 7088134-7 (Version None)
Quarter: 2010Q4

REPORT INFORMATION
  Report Type: 
  Country: None (occurrence: None)
  Receive Date: 20101028
  Receipt Date: 20101012
  Transmission Date: 20110411
  Serious: Yes (Hospitalization)
  Sender: FDA-Public Use
  Company Number: AE10-0042 (SAER#1)

PATIENT
  Age: 29 Year
  Sex: Male
  Weight: 70.1261 kg

DRUGS (2)
  1. DUTASTERIDE/TAMSULOSIN HYDROCHLORIDE [Suspect]
     Indication: BENIGN PROSTATIC HYPERPLASIA
  2. JALYN [Suspect]
     Indication: BENIGN PROSTATIC HYPERPLASIA
     Dosage: 0.5 MG/0.4 MG, ORAL
     Route: 048
     Dates: start: 20100912

REACTIONS (1)
  - ABDOMINAL PAIN [None]
